FAERS Safety Report 16759369 (Version 1)
Quarter: 2019Q3

REPORT INFORMATION
  Report Type: Spontaneous
  Country: GB (occurrence: GB)
  Receive Date: 20190830
  Receipt Date: 20190830
  Transmission Date: 20191005
  Serious: Yes (Other)
  Sender: FDA-Public Use
  Company Number: GB-GLAXOSMITHKLINE-GB2019157856

PATIENT
  Age: 61 Year
  Sex: Male
  Weight: 90 kg

DRUGS (1)
  1. BECONASE AQ [Suspect]
     Active Substance: BECLOMETHASONE DIPROPIONATE MONOHYDRATE
     Indication: NASAL CONGESTION
     Dosage: 4 DF, QD
     Route: 045
     Dates: start: 20180702, end: 20180802

REACTIONS (1)
  - Chorioretinopathy [Recovered/Resolved with Sequelae]

NARRATIVE: CASE EVENT DATE: 20180717
